FAERS Safety Report 8618463-4 (Version None)
Quarter: 2012Q3

REPORT INFORMATION
  Report Type: 
  Country: None (occurrence: None)
  Receive Date: 20120810
  Receipt Date: 20120810
  Transmission Date: 20120928
  Serious: Yes (Hospitalization)
  Sender: FDA-Public Use
  Company Number: None

PATIENT
  Age: 67 Year
  Sex: Male
  Weight: 68.0396 kg

DRUGS (2)
  1. PEGASYS/RIBAVIRIN 180 MCG/200 MG [Suspect]
     Indication: HEPATITIS C
     Dosage: 180 MCG/1200 MG SQ WEEKLY/PO DAILY OTHER
     Route: 050
     Dates: start: 20120212, end: 20120216
  2. TELAPREVIR 375 MG VERTEX [Suspect]
     Indication: HEPATITIS C
     Dosage: 2 TAB TID PO
     Route: 048
     Dates: start: 20120212, end: 20120216

REACTIONS (3)
  - VOMITING [None]
  - THROMBOCYTOPENIA [None]
  - NAUSEA [None]
